FAERS Safety Report 9529207 (Version 1)
Quarter: 2013Q3

REPORT INFORMATION
  Report Type: Spontaneous
  Country: US (occurrence: US)
  Receive Date: 20130917
  Receipt Date: 20130917
  Transmission Date: 20140515
  Serious: Yes (Hospitalization)
  Sender: FDA-Public Use
  Company Number: US-AMGEN-USASP2013064853

PATIENT
  Age: 56 Year
  Sex: Male

DRUGS (1)
  1. ENBREL [Suspect]
     Indication: RHEUMATOID ARTHRITIS
     Dosage: 50 MG, QWK
     Route: 065
     Dates: start: 20130131

REACTIONS (5)
  - Tremor [Not Recovered/Not Resolved]
  - Sinus congestion [Recovered/Resolved]
  - Respiratory tract congestion [Recovered/Resolved]
  - Skin mass [Not Recovered/Not Resolved]
  - Nasopharyngitis [Recovered/Resolved]
